FAERS Safety Report 6407782-8 (Version None)
Quarter: 2009Q4

REPORT INFORMATION
  Report Type: 
  Country: None (occurrence: None)
  Receive Date: 20091015
  Receipt Date: 20091001
  Transmission Date: 20100525
  Serious: Yes (Disabling)
  Sender: FDA-Public Use
  Company Number: RENA-1000472

PATIENT
  Age: 53 Year
  Sex: Female
  Weight: 41 kg

DRUGS (7)
  1. RENAGEL [Suspect]
     Indication: HYPERPHOSPHATAEMIA
     Dosage: 0.8 G, TID, ORAL
     Route: 048
     Dates: start: 20081101, end: 20090115
  2. RENAGEL [Suspect]
  3. ROCALTROL [Concomitant]
  4. TITRALAC (AMINOACETIC ACID, CALCIUM CARBONATE) [Concomitant]
  5. FOLIC ACID [Concomitant]
  6. VITAMIN B COMPLEX CAP [Concomitant]
  7. ERYTHROPOIETIN (ERYTHROPOIETIN) [Concomitant]

REACTIONS (5)
  - BALANCE DISORDER [None]
  - BLOOD POTASSIUM INCREASED [None]
  - GRIP STRENGTH DECREASED [None]
  - HYPERPHOSPHATAEMIA [None]
  - MUSCULAR WEAKNESS [None]
